FAERS Safety Report 7050387-9 (Version None)
Quarter: 2010Q4

REPORT INFORMATION
  Report Type: 
  Country: None (occurrence: None)
  Receive Date: 20101018
  Receipt Date: 20101012
  Transmission Date: 20110411
  Serious: No
  Sender: FDA-Public Use
  Company Number: US-ROXANE LABORATORIES, INC.-2010-RO-01279RO

PATIENT
  Sex: Female

DRUGS (6)
  1. METHADONE [Suspect]
     Indication: BACK PAIN
     Dosage: 40 MG
     Route: 048
     Dates: start: 20090101
  2. METHADONE [Suspect]
     Indication: PAIN IN EXTREMITY
  3. LYRICA [Concomitant]
     Dosage: 450 MG
  4. ELAVIL [Concomitant]
     Dosage: 50 MG
  5. ULTRACET [Concomitant]
  6. SOMA [Concomitant]
     Dosage: 1400 MG

REACTIONS (2)
  - DRUG INEFFECTIVE [None]
  - DRUG SCREEN NEGATIVE [None]
